FAERS Safety Report 23646521 (Version 1)
Quarter: 2024Q1

REPORT INFORMATION
  Report Type: Spontaneous
  Country: US (occurrence: US)
  Receive Date: 20240319
  Receipt Date: 20240319
  Transmission Date: 20240409
  Serious: Yes (Death, Hospitalization, Other)
  Sender: FDA-Public Use
  Company Number: US-CADILA HEALTHCARE LIMITED-US-ZYDUS-104168

PATIENT

DRUGS (2)
  1. COLCHICINE [Suspect]
     Active Substance: COLCHICINE
     Indication: Abdominal pain
     Dosage: WHOLE BOTTLE
     Route: 065
  2. COLCHICINE [Suspect]
     Active Substance: COLCHICINE
     Indication: Prophylaxis

REACTIONS (13)
  - Ventricular fibrillation [Fatal]
  - Metabolic acidosis [Unknown]
  - Hyperhidrosis [Unknown]
  - Lethargy [Unknown]
  - Agitation [Unknown]
  - Tachypnoea [Unknown]
  - Cardiac arrest [Fatal]
  - Nausea [Unknown]
  - Vomiting [Unknown]
  - Diarrhoea [Unknown]
  - Hypoxia [Unknown]
  - Intentional overdose [Unknown]
  - Intentional product misuse [Unknown]
